FAERS Safety Report 18984949 (Version 2)
Quarter: 2021Q1

REPORT INFORMATION
  Report Type: Report from Study
  Country: None (occurrence: US)
  Receive Date: 20210308
  Receipt Date: 20210331
  Transmission Date: 20210420
  Serious: Yes (Other)
  Sender: FDA-Public Use
  Company Number: US-ABBVIE-21K-163-3802475-00

PATIENT
  Sex: Female

DRUGS (1)
  1. HUMIRA [Suspect]
     Active Substance: ADALIMUMAB
     Indication: RHEUMATOID ARTHRITIS
     Dosage: CITRATE FREE
     Route: 058

REACTIONS (7)
  - Back disorder [Unknown]
  - Back pain [Not Recovered/Not Resolved]
  - Device physical property issue [Unknown]
  - Road traffic accident [Unknown]
  - Intervertebral disc disorder [Unknown]
  - Inflammation [Not Recovered/Not Resolved]
  - Intervertebral disc protrusion [Unknown]
